FAERS Safety Report 9726816 (Version 1)
Quarter: 2013Q4

REPORT INFORMATION
  Report Type: Spontaneous
  Country: CN (occurrence: None)
  Receive Date: 20131129
  Receipt Date: 20131129
  Transmission Date: 20140711
  Serious: Yes (Other)
  Sender: FDA-Public Use
  Company Number: IMP_06892_2013

PATIENT
  Age: 41 Year
  Sex: Male

DRUGS (1)
  1. VALPROIC ACID [Suspect]
     Indication: CONVULSION PROPHYLAXIS

REACTIONS (3)
  - Plasminogen increased [None]
  - Hypofibrinogenaemia [None]
  - Cerebral haemorrhage [None]
